FAERS Safety Report 4997900-0 (Version None)
Quarter: 2006Q2

REPORT INFORMATION
  Report Type: 
  Country: None (occurrence: None)
  Receive Date: 20060508
  Receipt Date: 20060426
  Transmission Date: 20061013
  Serious: Yes (Death, Hospitalization)
  Sender: FDA-Public Use
  Company Number: 2006032605

PATIENT
  Age: 86 Year
  Sex: Male

DRUGS (11)
  1. TIKOSYN [Suspect]
     Indication: ILL-DEFINED DISORDER
     Dosage: 250 MCG (125 MCG, 2 IN 1 D); SEE IMAGE
     Dates: end: 20060306
  2. ZOLOFT [Concomitant]
  3. LASIX [Concomitant]
  4. EXELON [Concomitant]
  5. LANOXIN [Concomitant]
  6. COLACE (DOCUSATE SODIUM) [Concomitant]
  7. KLOR-CON [Concomitant]
  8. LEVOTHYROXINE SODIUM [Concomitant]
  9. PREDNISONE TAB [Concomitant]
  10. NAMENDA [Concomitant]
  11. LISINOPRIL [Concomitant]

REACTIONS (2)
  - COGNITIVE DISORDER [None]
  - PNEUMONIA [None]
